FAERS Safety Report 23131263 (Version 5)
Quarter: 2025Q2

REPORT INFORMATION
  Report Type: Spontaneous
  Country: US (occurrence: US)
  Receive Date: 20231031
  Receipt Date: 20250414
  Transmission Date: 20250716
  Serious: No
  Sender: SANOFI AVENTIS
  Company Number: US-SA-SAC20231030001439

PATIENT
  Age: 53 Year
  Sex: Female
  Weight: 76.2 kg

DRUGS (5)
  1. DUPIXENT [Suspect]
     Active Substance: DUPILUMAB
     Indication: Dermatitis atopic
     Dosage: 300 MG, QOW
     Route: 058
  2. LOSARTAN POTASSIUM [Concomitant]
     Active Substance: LOSARTAN POTASSIUM
  3. VITAMIN D3 [Concomitant]
     Active Substance: CHOLECALCIFEROL
  4. FISH OIL [Concomitant]
     Active Substance: FISH OIL
  5. VITAMINS NOS [Concomitant]
     Active Substance: VITAMINS
     Dosage: UNK, QD

REACTIONS (9)
  - Dry skin [Not Recovered/Not Resolved]
  - Dermatitis atopic [Unknown]
  - Pruritus [Recovering/Resolving]
  - Rash [Recovering/Resolving]
  - Product dose omission issue [Unknown]
  - Hypersensitivity [Unknown]
  - Allergic cough [Unknown]
  - Burning sensation [Not Recovered/Not Resolved]
  - Injection site pain [Not Recovered/Not Resolved]

NARRATIVE: CASE EVENT DATE: 20230101
